FAERS Safety Report 9472362 (Version 3)
Quarter: 2013Q3

REPORT INFORMATION
  Report Type: Spontaneous
  Country: US (occurrence: US)
  Receive Date: 20130823
  Receipt Date: 20130926
  Transmission Date: 20140515
  Serious: Yes (Hospitalization)
  Sender: FDA-Public Use
  Company Number: US-JNJFOC-20130807760

PATIENT
  Age: 34 Year
  Sex: Male

DRUGS (6)
  1. STELARA [Suspect]
     Indication: PSORIASIS
     Route: 058
     Dates: start: 20120829
  2. CLOBETASOL [Concomitant]
     Route: 061
  3. CLOBEX [Concomitant]
     Route: 061
  4. LEVOTHYROXINE [Concomitant]
     Route: 065
  5. OMEPRAZOLE [Concomitant]
     Route: 065
  6. SYNTHROID [Concomitant]
     Route: 065

REACTIONS (2)
  - Hodgkin^s disease [Unknown]
  - Drug ineffective [Unknown]
